FAERS Safety Report 8337393-9 (Version None)
Quarter: 2012Q2

REPORT INFORMATION
  Report Type: 
  Country: None (occurrence: None)
  Receive Date: 20120504
  Receipt Date: 20110727
  Transmission Date: 20120825
  Serious: No
  Sender: FDA-Public Use
  Company Number: US-TEVA-2011003978

PATIENT
  Sex: Male
  Weight: 77.18 kg

DRUGS (8)
  1. CYMBALTA [Concomitant]
  2. BECONASE [Concomitant]
  3. NEXIUM [Concomitant]
  4. NUVIGIL [Suspect]
     Indication: POOR QUALITY SLEEP
  5. DETROL [Concomitant]
  6. CRESTOR [Concomitant]
  7. CLONAZEPAM [Concomitant]
  8. NUVIGIL [Suspect]
     Indication: ASTHENIA
     Dosage: 150 MILLIGRAM;
     Route: 048
     Dates: start: 20110725

REACTIONS (5)
  - ASTHENIA [None]
  - BRADYPHRENIA [None]
  - ANXIETY [None]
  - HEADACHE [None]
  - PALPITATIONS [None]
